FAERS Safety Report 18530183 (Version 1)
Quarter: 2020Q4

REPORT INFORMATION
  Report Type: Spontaneous
  Country: FI (occurrence: FI)
  Receive Date: 20201120
  Receipt Date: 20201120
  Transmission Date: 20210114
  Serious: Yes (Death, Life-Threatening, Hospitalization, Other)
  Sender: FDA-Public Use
  Company Number: FI-ASTRAZENECA-2020SF16344

PATIENT
  Age: 27374 Day
  Sex: Male

DRUGS (6)
  1. PREDNISOLON [Concomitant]
     Active Substance: PREDNISOLONE
     Dosage: 80MG X1 AT DECREASING DOSES
     Route: 065
     Dates: start: 20200831
  2. BEKOSTRONG [Concomitant]
     Dosage: 1 X 1
     Route: 048
  3. PREDNISOLON [Concomitant]
     Active Substance: PREDNISOLONE
     Dosage: 30MG X1 AT DECREASING DOSES
     Route: 065
     Dates: start: 20200921
  4. PREDNISOLON [Concomitant]
     Active Substance: PREDNISOLONE
     Route: 065
  5. IMFINZI [Suspect]
     Active Substance: DURVALUMAB
     Indication: LARGE CELL LUNG CANCER STAGE III
     Dosage: 840.0MG UNKNOWN
     Route: 042
     Dates: start: 20200709, end: 20200820
  6. ARTELAC [Concomitant]
     Dosage: 1 DROP X 2
     Route: 061

REACTIONS (3)
  - Pneumonitis [Fatal]
  - Pulmonary embolism [Fatal]
  - Malignant neoplasm progression [Fatal]

NARRATIVE: CASE EVENT DATE: 20200826
